FAERS Safety Report 13355569 (Version 1)
Quarter: 2017Q1

REPORT INFORMATION
  Report Type: Spontaneous
  Country: IE (occurrence: IE)
  Receive Date: 20170321
  Receipt Date: 20170321
  Transmission Date: 20170429
  Serious: Yes (Other)
  Sender: FDA-Public Use
  Company Number: IE-PFIZER INC-2017115327

PATIENT
  Age: 40 Year
  Sex: Male

DRUGS (5)
  1. VALIUM [Suspect]
     Active Substance: DIAZEPAM
     Indication: BACK INJURY
  2. LYRICA [Suspect]
     Active Substance: PREGABALIN
     Indication: BACK INJURY
  3. VALIUM [Suspect]
     Active Substance: DIAZEPAM
     Indication: PAIN
     Dosage: UNK
  4. LYRICA [Suspect]
     Active Substance: PREGABALIN
     Indication: PAIN
     Dosage: 100 MG, 2X/DAY
  5. VALIUM [Suspect]
     Active Substance: DIAZEPAM
     Indication: MUSCLE RELAXANT THERAPY

REACTIONS (4)
  - Renal disorder [Unknown]
  - Renal cell carcinoma [Unknown]
  - Impaired driving ability [Unknown]
  - Drug ineffective [Unknown]

NARRATIVE: CASE EVENT DATE: 2016
